FAERS Safety Report 9604364 (Version 3)
Quarter: 2013Q4

REPORT INFORMATION
  Report Type: Report from Study
  Country: BR (occurrence: BR)
  Receive Date: 20131008
  Receipt Date: 20131202
  Transmission Date: 20140711
  Serious: Yes (Death, Hospitalization, Other)
  Sender: FDA-Public Use
  Company Number: PHHY2013BR112197

PATIENT
  Age: 81 Year
  Sex: Male

DRUGS (3)
  1. FORASEQ [Suspect]
     Indication: CHRONIC OBSTRUCTIVE PULMONARY DISEASE
     Dosage: UNK, BID
  2. SPIRIVA [Suspect]
     Dosage: UNK UKN, UNK
  3. MAREVAN [Concomitant]
     Indication: ARTERIAL THROMBOSIS
     Dosage: HALF TABLET DURING 6 DAYS WEEK(1/2 TABLET DAILY), 1 TABLET PER WEEK,1 TABLET DURING 1 DAY OF WEEK
     Dates: end: 20130731

REACTIONS (7)
  - Inguinal hernia [Fatal]
  - Acute abdomen [Fatal]
  - Constipation [Fatal]
  - Abdominal distension [Fatal]
  - Septic shock [Fatal]
  - Bacterial translocation [Fatal]
  - Ageusia [Unknown]
